FAERS Safety Report 10309182 (Version 2)
Quarter: 2014Q4

REPORT INFORMATION
  Report Type: Spontaneous
  Country: US (occurrence: US)
  Receive Date: 20140716
  Receipt Date: 20141113
  Transmission Date: 20150528
  Serious: No
  Sender: FDA-Public Use
  Company Number: US-009507513-1407USA005659

PATIENT
  Age: 17 Year
  Sex: Female
  Weight: 77.55 kg

DRUGS (2)
  1. NEXPLANON [Suspect]
     Active Substance: ETONOGESTREL
     Indication: CONTRACEPTION
     Dosage: 1 SINGLE ROD
     Route: 059
     Dates: start: 20140516, end: 20140701
  2. NEXPLANON [Suspect]
     Active Substance: ETONOGESTREL
     Dosage: 1 SINGLE ROD
     Route: 059
     Dates: start: 20140516, end: 20140516

REACTIONS (7)
  - Wound drainage [Recovered/Resolved]
  - Device deployment issue [Recovered/Resolved]
  - Impaired healing [Recovered/Resolved]
  - Contusion [Recovered/Resolved]
  - Implant site pain [Recovered/Resolved]
  - Implant site infection [Recovered/Resolved]
  - Device expulsion [Recovered/Resolved]

NARRATIVE: CASE EVENT DATE: 2014
